FAERS Safety Report 20833258 (Version 2)
Quarter: 2022Q2

REPORT INFORMATION
  Report Type: Spontaneous
  Country: US (occurrence: US)
  Receive Date: 20220516
  Receipt Date: 20220516
  Transmission Date: 20220721
  Serious: No
  Sender: FDA-Public Use
  Company Number: US-PFIZER INC-202101649312

PATIENT
  Age: 59 Year
  Sex: Female
  Weight: 68.1 kg

DRUGS (10)
  1. SOLU-CORTEF [Suspect]
     Active Substance: HYDROCORTISONE SODIUM SUCCINATE
     Indication: Emergency care
     Dosage: 100 MG
     Route: 042
     Dates: start: 20211117
  2. DEMEROL [Suspect]
     Active Substance: MEPERIDINE HYDROCHLORIDE
     Indication: Emergency care
     Dosage: 12.5 MG
     Route: 042
     Dates: start: 20211117
  3. BENADRYL [Suspect]
     Active Substance: DIPHENHYDRAMINE HYDROCHLORIDE
     Indication: Emergency care
     Dosage: 50 MG
     Route: 042
     Dates: start: 20211117
  4. PELAREOREP [Concomitant]
     Active Substance: PELAREOREP
     Indication: Breast cancer
     Dosage: UNK
     Route: 042
     Dates: start: 20211115
  5. AVELUMAB [Concomitant]
     Active Substance: AVELUMAB
     Indication: Breast cancer
     Dosage: UNK
     Route: 042
     Dates: start: 20211117, end: 20211117
  6. PACLITAXEL [Concomitant]
     Active Substance: PACLITAXEL
     Indication: Breast cancer
     Dosage: UNK
     Route: 042
     Dates: start: 20211115
  7. SIMVASTATIN [Concomitant]
     Active Substance: SIMVASTATIN
     Dosage: 80 MG, DAILY(80 MG QD)
     Dates: start: 20170101
  8. VITAMINS [Concomitant]
     Active Substance: VITAMINS
     Dosage: 1 DF(1 TAB)
     Dates: start: 20170101
  9. CALTRATE + D [CALCIUM;ERGOCALCIFEROL] [Concomitant]
     Dosage: 1 DF, 2X/DAY(1 TAB BID)
     Dates: start: 20170101
  10. HERBALS\TURMERIC [Concomitant]
     Active Substance: HERBALS\TURMERIC
     Dosage: 500 MG, 1X/DAY(500 MG QD)
     Dates: start: 20170101

REACTIONS (1)
  - Drug ineffective [Recovering/Resolving]

NARRATIVE: CASE EVENT DATE: 20211117
